FAERS Safety Report 7112202-4 (Version None)
Quarter: 2010Q4

REPORT INFORMATION
  Report Type: 
  Country: None (occurrence: None)
  Receive Date: 20101119
  Receipt Date: 20100316
  Transmission Date: 20110411
  Serious: No
  Sender: FDA-Public Use
  Company Number: A0847141A

PATIENT
  Age: 77 Year
  Sex: Male
  Weight: 77.3 kg

DRUGS (2)
  1. AVODART [Suspect]
     Route: 048
  2. HYPOTENSIVE AGENT [Concomitant]
     Indication: HYPOTENSION
     Route: 048

REACTIONS (4)
  - DYSPEPSIA [None]
  - GASTROOESOPHAGEAL REFLUX DISEASE [None]
  - INSOMNIA [None]
  - REFLUX OESOPHAGITIS [None]
